FAERS Safety Report 22019754 (Version 1)
Quarter: 2023Q1

REPORT INFORMATION
  Report Type: Spontaneous
  Country: US (occurrence: US)
  Receive Date: 20230222
  Receipt Date: 20230222
  Transmission Date: 20230417
  Serious: No
  Sender: FDA-Public Use
  Company Number: US-TAKEDA-2023TUS018646

PATIENT
  Sex: Female
  Weight: 109 kg

DRUGS (7)
  1. MOTEGRITY [Suspect]
     Active Substance: PRUCALOPRIDE SUCCINATE
     Indication: Impaired gastric emptying
     Dosage: 1 MILLIGRAM, BID
     Route: 065
     Dates: start: 20221212
  2. MOTEGRITY [Suspect]
     Active Substance: PRUCALOPRIDE SUCCINATE
     Indication: Gastrointestinal motility disorder
  3. MOTEGRITY [Suspect]
     Active Substance: PRUCALOPRIDE SUCCINATE
     Indication: Functional gastrointestinal disorder
  4. PEPPERMINT OIL [Concomitant]
     Active Substance: PEPPERMINT OIL
  5. PROPRANOLOL [Concomitant]
     Active Substance: PROPRANOLOL HYDROCHLORIDE
  6. SALT [Concomitant]
     Active Substance: SODIUM CHLORIDE
  7. ZOLOFT [Concomitant]
     Active Substance: SERTRALINE HYDROCHLORIDE
     Dosage: 100 MILLIGRAM, QD

REACTIONS (1)
  - Drug ineffective [Unknown]
